FAERS Safety Report 7319551-5 (Version None)
Quarter: 2011Q1

REPORT INFORMATION
  Report Type: 
  Country: None (occurrence: None)
  Receive Date: 20110228
  Receipt Date: 20100518
  Transmission Date: 20110831
  Serious: No
  Sender: FDA-Public Use
  Company Number: A0860220A

PATIENT
  Sex: Male

DRUGS (6)
  1. CYMBALTA [Concomitant]
  2. BLOOD PRESSURE MEDICATION [Concomitant]
  3. LAMICTAL [Suspect]
     Indication: BIPOLAR DISORDER
     Dosage: 100MG PER DAY
     Route: 048
  4. MULTIPLE MEDICATIONS [Concomitant]
  5. ZYPREXA [Concomitant]
  6. LITHOBID [Concomitant]

REACTIONS (1)
  - URTICARIA [None]
